FAERS Safety Report 5329701-8 (Version None)
Quarter: 2007Q2

REPORT INFORMATION
  Report Type: 
  Country: None (occurrence: None)
  Receive Date: 20070515
  Receipt Date: 20070507
  Transmission Date: 20071010
  Serious: No
  Sender: FDA-Public Use
  Company Number: 2007-157394-NL

PATIENT
  Age: 28 Year
  Sex: Female

DRUGS (1)
  1. ETONOGESTREL (BATCH #; 910540/887089) [Suspect]
     Dosage: DF
     Route: 059
     Dates: start: 20070430

REACTIONS (5)
  - DEPRESSION [None]
  - MENSTRUATION IRREGULAR [None]
  - MOOD SWINGS [None]
  - SUICIDAL IDEATION [None]
  - WEIGHT INCREASED [None]
